FAERS Safety Report 8596247 (Version 4)
Quarter: 2014Q1

REPORT INFORMATION
  Report Type: Spontaneous
  Country: US (occurrence: US)
  Receive Date: 20120605
  Receipt Date: 20140121
  Transmission Date: 20141002
  Serious: Yes (Hospitalization, Disabling, Other)
  Sender: FDA-Public Use
  Company Number: US-ASTRAZENECA-2012SE35749

PATIENT
  Age: 59 Year
  Sex: Female

DRUGS (16)
  1. NEXIUM [Suspect]
     Indication: GASTROOESOPHAGEAL REFLUX DISEASE
     Dosage: ONE TIME PER DAY
     Route: 048
     Dates: start: 2005, end: 2007
  2. NEXIUM [Suspect]
     Indication: DYSPEPSIA
     Dosage: ONE TIME PER DAY
     Route: 048
     Dates: start: 2005, end: 2007
  3. NEXIUM [Suspect]
     Indication: GASTROOESOPHAGEAL REFLUX DISEASE
     Route: 048
     Dates: start: 20050505
  4. NEXIUM [Suspect]
     Indication: DYSPEPSIA
     Route: 048
     Dates: start: 20050505
  5. NEXIUM [Suspect]
     Indication: GASTROOESOPHAGEAL REFLUX DISEASE
     Route: 048
     Dates: start: 20050504
  6. NEXIUM [Suspect]
     Indication: DYSPEPSIA
     Route: 048
     Dates: start: 20050504
  7. BENICAR-HCT [Concomitant]
     Indication: BLOOD PRESSURE
     Dosage: 40/12.5  MG
  8. BENICAR-HCT [Concomitant]
     Indication: BLOOD PRESSURE
     Dosage: 40/12.5  MG DAILY
     Route: 048
     Dates: start: 20050504
  9. LIPITOR [Concomitant]
  10. LIPITOR [Concomitant]
     Route: 048
     Dates: start: 20050504
  11. QUININE [Concomitant]
     Indication: CHRONIC OBSTRUCTIVE PULMONARY DISEASE
  12. FASOMAX [Concomitant]
  13. ATENOLOL [Concomitant]
     Indication: BLOOD PRESSURE
     Dates: start: 20080816
  14. TYLENOL [Concomitant]
  15. DARVOCET [Concomitant]
  16. ANEXSIA/ VICODIN [Concomitant]

REACTIONS (7)
  - Upper limb fracture [Unknown]
  - Joint dislocation [Unknown]
  - Osteoporosis [Unknown]
  - Humerus fracture [Unknown]
  - Type 2 diabetes mellitus [Unknown]
  - Haemarthrosis [Unknown]
  - Osteoarthritis [Unknown]
